FAERS Safety Report 7867391-0 (Version None)
Quarter: 2011Q4

REPORT INFORMATION
  Report Type: 
  Country: None (occurrence: None)
  Receive Date: 20111028
  Receipt Date: 20111020
  Transmission Date: 20120403
  Serious: Yes (Hospitalization)
  Sender: FDA-Public Use
  Company Number: US-MERCK-1110USA03435

PATIENT
  Sex: Female

DRUGS (1)
  1. ZETIA [Suspect]
     Route: 048
     Dates: start: 20050101

REACTIONS (4)
  - RIB FRACTURE [None]
  - FALL [None]
  - DRUG DOSE OMISSION [None]
  - FOOT FRACTURE [None]
